FAERS Safety Report 5175588-6 (Version None)
Quarter: 2006Q4

REPORT INFORMATION
  Report Type: 
  Country: None (occurrence: None)
  Receive Date: 20061215
  Receipt Date: 20061212
  Transmission Date: 20070319
  Serious: Yes (Disabling, Other)
  Sender: FDA-Public Use
  Company Number: FR-JNJFOC-20061003431

PATIENT
  Age: 44 Year
  Sex: Female
  Weight: 55 kg

DRUGS (4)
  1. REMICADE [Suspect]
     Indication: COLITIS ULCERATIVE
     Dosage: 1ST INFUSION RECEIVED 1 YEAR AGO
     Route: 042
  2. SOLUPRED [Suspect]
     Indication: PREMEDICATION
     Dosage: RECEIVED PRIOR TO INFLIXIMAB INFUSION
     Route: 065
  3. CARBOSYLANE [Concomitant]
     Route: 065
  4. DEBRIDAT [Concomitant]
     Route: 065

REACTIONS (1)
  - OSTEOCHONDROSIS [None]
